FAERS Safety Report 9340151 (Version 1)
Quarter: 2013Q2

REPORT INFORMATION
  Report Type: Spontaneous
  Country: US (occurrence: US)
  Receive Date: 20130610
  Receipt Date: 20130610
  Transmission Date: 20140414
  Serious: No
  Sender: FDA-Public Use
  Company Number: US-LEHIGH_VALLEY-USA-2011POI058000003

PATIENT
  Age: 48 Year
  Sex: Male
  Weight: 87.17 kg

DRUGS (17)
  1. OXYCODONE HYDROCHLORIDE [Suspect]
     Route: 048
  2. METFORMIN [Suspect]
     Dosage: 1500 MG
  3. LANTUS [Suspect]
  4. GLIMEPIRIDE [Suspect]
     Route: 048
  5. AVANDIA [Suspect]
     Route: 048
  6. LIPITOR [Concomitant]
     Indication: BLOOD CHOLESTEROL INCREASED
     Route: 048
     Dates: start: 2010
  7. VIAGRA [Concomitant]
     Route: 048
     Dates: start: 2010
  8. TRAZODONE [Concomitant]
     Indication: SLEEP DISORDER
  9. AMITRIPTYLINE [Concomitant]
  10. CLONAZEPAM [Concomitant]
  11. IBUPROFEN [Concomitant]
     Indication: INFLAMMATION
     Route: 048
  12. IBUPROFEN [Concomitant]
     Indication: BACK PAIN
  13. SIMVASTATIN [Concomitant]
     Indication: BLOOD CHOLESTEROL INCREASED
  14. LITHIUM CARBONATE [Concomitant]
  15. ZOLPIDEM [Concomitant]
     Indication: SLEEP DISORDER
  16. SOMA [Concomitant]
  17. CIALIS [Concomitant]

REACTIONS (1)
  - Drug tolerance increased [Unknown]
